FAERS Safety Report 26134904 (Version 1)
Quarter: 2025Q4

REPORT INFORMATION
  Report Type: Spontaneous
  Country: US (occurrence: US)
  Receive Date: 20251209
  Receipt Date: 20251209
  Transmission Date: 20260117
  Serious: Yes (Hospitalization, Disabling)
  Sender: ASPIRO PHARMA
  Company Number: US-AMAROX PHARMA-ASP2025US07414

PATIENT
  Age: 80 Year
  Sex: Male

DRUGS (3)
  1. OLANZAPINE [Suspect]
     Active Substance: OLANZAPINE
     Indication: Bipolar I disorder
     Dosage: UNK
     Route: 065
  2. OLANZAPINE [Suspect]
     Active Substance: OLANZAPINE
     Indication: Insomnia
     Dosage: (DOSE INCREASED FOR INSOMNIA)
     Route: 065
  3. OLANZAPINE [Suspect]
     Active Substance: OLANZAPINE
     Dosage: (DOSE DECREASED)
     Route: 065

REACTIONS (1)
  - Parkinsonism [Recovering/Resolving]
